FAERS Safety Report 4469383-0 (Version None)
Quarter: 2004Q4

REPORT INFORMATION
  Report Type: 
  Country: None (occurrence: None)
  Receive Date: 20041008
  Receipt Date: 20040427
  Transmission Date: 20050328
  Serious: No
  Sender: FDA-Public Use
  Company Number: US-BRISTOL-MYERS SQUIBB COMPANY-12573531

PATIENT
  Age: 74 Year
  Sex: Female
  Weight: 67 kg

DRUGS (3)
  1. AVAPRO [Suspect]
     Indication: HYPERTENSION
     Dosage: DOSAGE INCREASED TO 300MG DAILY
     Route: 048
     Dates: end: 20040423
  2. ZOCOR [Concomitant]
  3. PREMARIN [Concomitant]
     Dosage: DURATION: ^SEVERAL YEARS^

REACTIONS (6)
  - ABDOMINAL PAIN [None]
  - ALOPECIA [None]
  - DIARRHOEA [None]
  - DRUG INEFFECTIVE [None]
  - MUSCLE CRAMP [None]
  - NAUSEA [None]
